FAERS Safety Report 5168532-9 (Version None)
Quarter: 2006Q4

REPORT INFORMATION
  Report Type: 
  Country: None (occurrence: None)
  Receive Date: 20061208
  Receipt Date: 20061130
  Transmission Date: 20070319
  Serious: Yes (Hospitalization)
  Sender: FDA-Public Use
  Company Number: US-ABBOTT-06P-163-0352207-00

PATIENT
  Age: 33 Year
  Sex: Female

DRUGS (2)
  1. DIVALPROEX EC TABLETS [Suspect]
     Indication: BIPOLAR DISORDER
     Route: 048
  2. DIVALPROEX EC TABLETS [Suspect]
     Route: 048

REACTIONS (7)
  - BLOOD SODIUM INCREASED [None]
  - DEPRESSED LEVEL OF CONSCIOUSNESS [None]
  - DRUG TOXICITY [None]
  - ELECTROCARDIOGRAM QT PROLONGED [None]
  - HYPERAMMONAEMIA [None]
  - HYPOTENSION [None]
  - INTENTIONAL OVERDOSE [None]
